FAERS Safety Report 16022836 (Version 1)
Quarter: 2019Q1

REPORT INFORMATION
  Report Type: Spontaneous
  Country: US (occurrence: US)
  Receive Date: 20190202
  Receipt Date: 20190202
  Transmission Date: 20190418
  Serious: Yes (Hospitalization)
  Sender: FDA-Public Use
  Company Number: None

PATIENT
  Age: 59 Year
  Sex: Female

DRUGS (15)
  1. ALPRAZOLAM. [Concomitant]
     Active Substance: ALPRAZOLAM
  2. CITALOPRAM [Concomitant]
     Active Substance: CITALOPRAM HYDROBROMIDE
  3. LEVOTHYROXIN [Concomitant]
     Active Substance: LEVOTHYROXINE
  4. METFORMIN [Concomitant]
     Active Substance: METFORMIN HYDROCHLORIDE
  5. CIPROFLOXACN [Concomitant]
     Active Substance: CIPROFLOXACIN
  6. HEPARIN [Concomitant]
     Active Substance: HEPARIN SODIUM
  7. MELOXICAM. [Concomitant]
     Active Substance: MELOXICAM
  8. STELARA [Suspect]
     Active Substance: USTEKINUMAB
     Indication: PSORIASIS
     Dosage: ?          OTHER FREQUENCY:EVERY 12 WEEKS; UNDER THE SKIN?
     Route: 058
     Dates: start: 20170107
  9. METOPROLOL TARTRATE. [Concomitant]
     Active Substance: METOPROLOL TARTRATE
  10. ATORVASTATIN [Concomitant]
     Active Substance: ATORVASTATIN
  11. AMIODARONE [Concomitant]
     Active Substance: AMIODARONE
  12. BENAZEPRIL [Concomitant]
     Active Substance: BENAZEPRIL HYDROCHLORIDE
  13. GABAPENTIN. [Concomitant]
     Active Substance: GABAPENTIN
  14. SYMBICORT [Concomitant]
     Active Substance: BUDESONIDE\FORMOTEROL FUMARATE DIHYDRATE
  15. WARFARIN [Concomitant]
     Active Substance: WARFARIN

REACTIONS (2)
  - Renal failure [None]
  - Dialysis [None]

NARRATIVE: CASE EVENT DATE: 201812
